FAERS Safety Report 16949918 (Version 2)
Quarter: 2020Q1

REPORT INFORMATION
  Report Type: Report from Study
  Country: None (occurrence: UY)
  Receive Date: 20191023
  Receipt Date: 20200113
  Transmission Date: 20200409
  Serious: Yes (Other)
  Sender: FDA-Public Use
  Company Number: UY-ABBVIE-19K-168-2969307-00

PATIENT
  Age: 60 Year
  Sex: Male

DRUGS (1)
  1. HUMIRA [Suspect]
     Active Substance: ADALIMUMAB
     Indication: RHEUMATOID ARTHRITIS
     Route: 058
     Dates: start: 20170407

REACTIONS (6)
  - Swelling [Recovering/Resolving]
  - Limb mass [Unknown]
  - Synovial cyst [Unknown]
  - Peripheral swelling [Recovering/Resolving]
  - Tendon disorder [Unknown]
  - Fibrosis tendinous [Unknown]

NARRATIVE: CASE EVENT DATE: 201909
